FAERS Safety Report 16834238 (Version 2)
Quarter: 2019Q4

REPORT INFORMATION
  Report Type: Spontaneous
  Country: PT (occurrence: PT)
  Receive Date: 20190920
  Receipt Date: 20191226
  Transmission Date: 20200122
  Serious: Yes (Death, Life-Threatening, Hospitalization, Other)
  Sender: FDA-Public Use
  Company Number: PT-MYLANLABS-2019M1087756

PATIENT
  Age: 49 Year
  Sex: Female

DRUGS (10)
  1. COLISTIN [Suspect]
     Active Substance: COLISTIN
     Dosage: UNK (5 MU IV Q12H)
     Route: 042
     Dates: start: 2017
  2. COLISTIN [Suspect]
     Active Substance: COLISTIN
     Dosage: UNK (A LOADING DOSE OF 8 MU IV)
     Route: 042
     Dates: start: 2017
  3. MEROPENEM. [Suspect]
     Active Substance: MEROPENEM
     Indication: KLEBSIELLA INFECTION
     Dosage: 1 GRAM, Q8H (1 G, Q8H)
     Dates: start: 2017
  4. MEROPENEM. [Suspect]
     Active Substance: MEROPENEM
     Dosage: 2 GRAM, Q8H (DOSE INCREAESD 2 G, Q8H IN A 3-H EXTENDED INFUSION)
     Dates: start: 2017
  5. DOXORUBICIN [Suspect]
     Active Substance: DOXORUBICIN
     Indication: ACUTE LYMPHOCYTIC LEUKAEMIA
     Dosage: UNK
     Dates: start: 2017
  6. COLISTIN [Suspect]
     Active Substance: COLISTIN
     Indication: KLEBSIELLA INFECTION
     Dosage: UNK (FOLLOWED BY A MAINTENANCE DOSE OF 4 MU IV Q12H)
     Route: 042
     Dates: start: 2017
  7. CYCLOPHOSPHAMIDE. [Suspect]
     Active Substance: CYCLOPHOSPHAMIDE
     Indication: ACUTE LYMPHOCYTIC LEUKAEMIA
     Dosage: UNK
     Dates: start: 2017
  8. VINCRISTINE SULFATE. [Suspect]
     Active Substance: VINCRISTINE SULFATE
     Indication: ACUTE LYMPHOCYTIC LEUKAEMIA
     Dosage: UNK
     Dates: start: 2017
  9. DEXAMETHASONE. [Suspect]
     Active Substance: DEXAMETHASONE
     Indication: ACUTE LYMPHOCYTIC LEUKAEMIA
     Dosage: UNK
     Dates: start: 2017
  10. AMIKACIN SULFATE. [Suspect]
     Active Substance: AMIKACIN SULFATE
     Indication: KLEBSIELLA INFECTION
     Dosage: 1 GRAM, QD (1 G, QD)
     Dates: start: 2017

REACTIONS (9)
  - Multiple organ dysfunction syndrome [Fatal]
  - Klebsiella bacteraemia [Fatal]
  - Drug resistance [Fatal]
  - Klebsiella infection [Fatal]
  - Gastrointestinal inflammation [Not Recovered/Not Resolved]
  - Neutropenic colitis [Fatal]
  - Neutropenic sepsis [Fatal]
  - Neutropenia [Fatal]
  - Osteomyelitis bacterial [Fatal]

NARRATIVE: CASE EVENT DATE: 2017
